FAERS Safety Report 5298899-2 (Version None)
Quarter: 2007Q2

REPORT INFORMATION
  Report Type: 
  Country: None (occurrence: None)
  Receive Date: 20070412
  Receipt Date: 20070412
  Transmission Date: 20071010
  Serious: No
  Sender: FDA-Public Use
  Company Number: None

PATIENT
  Age: 54 Year
  Sex: Male
  Weight: 88.4514 kg

DRUGS (2)
  1. AMOXICILLIN [Suspect]
     Indication: PNEUMONIA
     Dosage: 500 MG EVERY 6 HOURS PO
     Route: 048
     Dates: start: 20070330, end: 20070406
  2. AMOXICILLIN [Suspect]
     Indication: PNEUMONIA
     Dosage: 1000 MG EVERY 8 HOURS PO
     Route: 048
     Dates: start: 20070409, end: 20070413

REACTIONS (5)
  - ARTHRALGIA [None]
  - HYPERSOMNIA [None]
  - LETHARGY [None]
  - MYALGIA [None]
  - PHARYNGOLARYNGEAL PAIN [None]
